FAERS Safety Report 8851275 (Version 1)
Quarter: 2012Q4

REPORT INFORMATION
  Report Type: 
  Country: IT (occurrence: IT)
  Receive Date: 20121019
  Receipt Date: 20121019
  Transmission Date: 20130627
  Serious: Yes (Other)
  Sender: FDA-Public Use
  Company Number: PHHY2012IT091098

PATIENT
  Age: 75 Year
  Sex: Female

DRUGS (1)
  1. PREDNISONE [Suspect]
     Indication: TEMPORAL ARTERITIS
     Dosage: 60 mg, QD

REACTIONS (12)
  - Dementia [Recovered/Resolved]
  - Mental disorder due to a general medical condition [Recovered/Resolved]
  - Memory impairment [Recovered/Resolved]
  - Insomnia [Recovered/Resolved]
  - Anxiety [Recovered/Resolved]
  - Affect lability [Recovered/Resolved]
  - Affective disorder [Recovered/Resolved]
  - Apathy [Recovered/Resolved]
  - Disorientation [Recovered/Resolved]
  - Amnestic disorder [Recovered/Resolved]
  - Attention deficit/hyperactivity disorder [Recovered/Resolved]
  - Atrophy [Recovered/Resolved]
